FAERS Safety Report 16258711 (Version 1)
Quarter: 2019Q2

REPORT INFORMATION
  Report Type: Spontaneous
  Country: CA (occurrence: CA)
  Receive Date: 20190430
  Receipt Date: 20190430
  Transmission Date: 20190711
  Serious: Yes (Death)
  Sender: FDA-Public Use
  Company Number: PHHY2019CA098727

PATIENT
  Age: 76 Year
  Sex: Male

DRUGS (1)
  1. VALSARTAN SANDOZ [Suspect]
     Active Substance: VALSARTAN
     Indication: BLOOD PRESSURE MANAGEMENT
     Dosage: 160 MG, QD
     Route: 048

REACTIONS (4)
  - Somnolence [Fatal]
  - Diarrhoea [Fatal]
  - Decreased appetite [Fatal]
  - Fatigue [Fatal]
